FAERS Safety Report 21210698 (Version 4)
Quarter: 2023Q2

REPORT INFORMATION
  Report Type: Report from Study
  Country: DE (occurrence: DE)
  Receive Date: 20220815
  Receipt Date: 20230515
  Transmission Date: 20230721
  Serious: Yes (Hospitalization, Other)
  Sender: FDA-Public Use
  Company Number: DE-NOVARTISPH-NVSC2022DE181893

PATIENT
  Sex: Female

DRUGS (19)
  1. ERELZI [Suspect]
     Active Substance: ETANERCEPT-SZZS
     Indication: Rheumatoid arthritis
     Dosage: 50 MG
     Route: 065
  2. ERELZI [Suspect]
     Active Substance: ETANERCEPT-SZZS
     Dosage: 50 MG
     Route: 065
     Dates: start: 201710
  3. ERELZI [Suspect]
     Active Substance: ETANERCEPT-SZZS
     Dosage: 50 MG
     Route: 065
     Dates: end: 202010
  4. ERELZI [Suspect]
     Active Substance: ETANERCEPT-SZZS
     Dosage: 50 MG
     Route: 065
  5. ERELZI [Suspect]
     Active Substance: ETANERCEPT-SZZS
     Dosage: 50 MG
     Route: 065
  6. METHOTREXATE [Suspect]
     Active Substance: METHOTREXATE
     Indication: Rheumatoid arthritis
     Dosage: 7.5 MG
     Route: 065
     Dates: start: 20170802
  7. METHOTREXATE [Suspect]
     Active Substance: METHOTREXATE
     Dosage: 7.5 MG
     Route: 065
     Dates: start: 20171005
  8. METHOTREXATE [Suspect]
     Active Substance: METHOTREXATE
     Dosage: 7.5 MG
     Route: 065
     Dates: start: 20180110
  9. METHOTREXATE [Suspect]
     Active Substance: METHOTREXATE
     Dosage: 7.5 MG
     Route: 065
     Dates: start: 20180706
  10. METHOTREXATE [Suspect]
     Active Substance: METHOTREXATE
     Dosage: 7.5 MG
     Route: 065
     Dates: start: 20190108
  11. METHOTREXATE [Suspect]
     Active Substance: METHOTREXATE
     Dosage: 7.5 MG
     Route: 065
     Dates: start: 20190702
  12. METHOTREXATE [Suspect]
     Active Substance: METHOTREXATE
     Dosage: 5 MG
     Route: 065
     Dates: start: 20200127
  13. METHOTREXATE [Suspect]
     Active Substance: METHOTREXATE
     Dosage: 5 MG
     Route: 065
     Dates: start: 20200728
  14. METHOTREXATE [Suspect]
     Active Substance: METHOTREXATE
     Dosage: 5 MG
     Route: 065
     Dates: start: 20210114
  15. METHOTREXATE [Suspect]
     Active Substance: METHOTREXATE
     Dosage: 10 MG
     Route: 065
     Dates: start: 20210823
  16. METHOTREXATE [Suspect]
     Active Substance: METHOTREXATE
     Dosage: 5 MG
     Route: 065
     Dates: start: 20220324
  17. RITUXIMAB [Suspect]
     Active Substance: RITUXIMAB
     Indication: Product used for unknown indication
     Dosage: 1000 MG
     Route: 065
     Dates: start: 202112
  18. ETANERCEPT [Suspect]
     Active Substance: ETANERCEPT
     Indication: Rheumatoid arthritis
     Dosage: 50 MG
     Route: 065
     Dates: start: 201708, end: 201710
  19. ORENCIA [Suspect]
     Active Substance: ABATACEPT
     Indication: Rheumatoid arthritis
     Dosage: 125 MG
     Route: 065
     Dates: start: 202101, end: 202102

REACTIONS (13)
  - Respiratory failure [Recovered/Resolved]
  - Fibromyalgia [Recovered/Resolved]
  - Cholelithiasis [Unknown]
  - Pulmonary fibrosis [Unknown]
  - Productive cough [Unknown]
  - Stomatitis [Unknown]
  - Arthralgia [Unknown]
  - Intestinal polyp [Unknown]
  - Gastritis [Unknown]
  - Emphysema [Unknown]
  - Nasopharyngitis [Unknown]
  - Gastrointestinal pain [Unknown]
  - Urinary tract infection [Unknown]

NARRATIVE: CASE EVENT DATE: 20210714
